FAERS Safety Report 9492327 (Version 1)
Quarter: 2013Q3

REPORT INFORMATION
  Report Type: Spontaneous
  Country: GB (occurrence: GB)
  Receive Date: 20130830
  Receipt Date: 20130830
  Transmission Date: 20140515
  Serious: Yes (Life-Threatening, Hospitalization, Other)
  Sender: FDA-Public Use
  Company Number: PHHY2013GB093413

PATIENT
  Age: 83 Year
  Sex: Male

DRUGS (12)
  1. DOXYCYCLINE [Suspect]
     Indication: LOWER RESPIRATORY TRACT INFECTION
     Dosage: UNK
     Route: 048
  2. CALCICHEW D3 [Interacting]
  3. TIOTROPIUM [Concomitant]
     Dosage: UNK
  4. TAMSULOSIN [Concomitant]
     Dosage: 400 UG, QD
  5. RANITIDINE [Concomitant]
     Dosage: 150 MG, BID
  6. DIPYRIDAMOLE [Concomitant]
     Dosage: 200 MG, BID
  7. BISOPROLOL [Concomitant]
     Dosage: UNK
  8. ASPIRIN [Concomitant]
     Dosage: 75 MG, QD
  9. PRAVASTATIN [Concomitant]
     Dosage: 40 MG, QD (AT NIGHT)
  10. DIGOXIN [Concomitant]
     Dosage: 125 UG, QD
  11. FUROSEMIDE [Concomitant]
     Dosage: UNK
  12. SYMBICORT [Concomitant]
     Dosage: UNK
     Route: 055

REACTIONS (3)
  - Drug prescribing error [Unknown]
  - Treatment failure [Recovered/Resolved]
  - Drug interaction [Unknown]
